FAERS Safety Report 13961189 (Version 1)
Quarter: 2017Q3

REPORT INFORMATION
  Report Type: Spontaneous
  Country: US (occurrence: US)
  Receive Date: 20170912
  Receipt Date: 20170912
  Transmission Date: 20171128
  Serious: Yes (Hospitalization, Other)
  Sender: FDA-Public Use
  Company Number: US-SUPERNUS PHARMACEUTICALS, INC.-2017SUP00236

PATIENT
  Age: 48 Year
  Sex: Female
  Weight: 75.74 kg

DRUGS (4)
  1. CHLORTHALIDONE. [Concomitant]
     Active Substance: CHLORTHALIDONE
     Dosage: UNK
     Dates: end: 201708
  2. TROKENDI XR [Suspect]
     Active Substance: TOPIRAMATE
     Indication: MIGRAINE
     Dosage: 200 MG, 1X/DAY AT NIGHT
     Route: 048
     Dates: start: 201707
  3. TOPIRAMATE IMMEDIATE RELEASE [Suspect]
     Active Substance: TOPIRAMATE
     Indication: MIGRAINE
     Dosage: 50 MG, 2X/DAY IN THE MORNING AND AT NIGHT
     Dates: start: 201707, end: 201707
  4. TROKENDI XR [Suspect]
     Active Substance: TOPIRAMATE
     Dosage: 200 MG, 1X/DAY AT NIGHT
     Route: 048
     Dates: start: 2017, end: 201707

REACTIONS (2)
  - Blood potassium decreased [Recovering/Resolving]
  - Gallbladder operation [Recovered/Resolved]

NARRATIVE: CASE EVENT DATE: 201707
